FAERS Safety Report 6815383-2 (Version None)
Quarter: 2010Q3

REPORT INFORMATION
  Report Type: 
  Country: None (occurrence: None)
  Receive Date: 20100701
  Receipt Date: 20100701
  Transmission Date: 20110219
  Serious: Yes (Other)
  Sender: FDA-Public Use
  Company Number: None

PATIENT
  Sex: Male
  Weight: 74.8435 kg

DRUGS (4)
  1. FENTANYL [Suspect]
     Indication: PROSTATE CANCER METASTATIC
     Dosage: 75 MCG/HR Q 72HRS TRANSDERMAL
     Route: 062
  2. TRAZODONE HCL [Concomitant]
  3. CODEINE SUL TAB [Concomitant]
  4. ELAVIL [Concomitant]

REACTIONS (2)
  - INCORRECT DRUG ADMINISTRATION DURATION [None]
  - PRODUCT QUALITY ISSUE [None]
